FAERS Safety Report 5741621-3 (Version None)
Quarter: 2008Q2

REPORT INFORMATION
  Report Type: 
  Country: None (occurrence: None)
  Receive Date: 20080519
  Receipt Date: 20061115
  Transmission Date: 20081010
  Serious: No
  Sender: FDA-Public Use
  Company Number: US-BAYER-US-2006-035735

PATIENT
  Age: 45 Year
  Sex: Female
  Weight: 68 kg

DRUGS (1)
  1. ULTRAVIST 300 [Suspect]
     Dosage: UNIT DOSE: 75 ML
     Route: 042
     Dates: start: 20061114, end: 20061114

REACTIONS (1)
  - CONTRAST MEDIA REACTION [None]
